FAERS Safety Report 7026294-4 (Version None)
Quarter: 2010Q4

REPORT INFORMATION
  Report Type: 
  Country: None (occurrence: None)
  Receive Date: 20101004
  Receipt Date: 20100922
  Transmission Date: 20110411
  Serious: Yes (Other)
  Sender: FDA-Public Use
  Company Number: JP-PFIZER INC-2010119857

PATIENT

DRUGS (2)
  1. AZULFIDINE [Suspect]
     Dosage: UNK
     Route: 048
  2. LOXONIN [Concomitant]

REACTIONS (1)
  - HEPATIC FUNCTION ABNORMAL [None]
